FAERS Safety Report 10174122 (Version 2)
Quarter: 2014Q3

REPORT INFORMATION
  Report Type: Spontaneous
  Country: US (occurrence: US)
  Receive Date: 20140515
  Receipt Date: 20140826
  Transmission Date: 20150326
  Serious: No
  Sender: FDA-Public Use
  Company Number: US-GILEAD-2014-0102400

PATIENT
  Age: 53 Year
  Sex: Female

DRUGS (3)
  1. POTASSIUM [Suspect]
     Active Substance: POTASSIUM
     Indication: PRODUCT USED FOR UNKNOWN INDICATION
     Route: 065
  2. REVATIO [Concomitant]
     Active Substance: SILDENAFIL CITRATE
  3. LETAIRIS [Suspect]
     Active Substance: AMBRISENTAN
     Indication: PULMONARY ARTERIAL HYPERTENSION
     Dosage: 5 MG, QD
     Route: 065
     Dates: start: 20140312

REACTIONS (5)
  - Tremor [Recovered/Resolved]
  - Blood potassium increased [Unknown]
  - Dizziness [Unknown]
  - Oedema peripheral [Unknown]
  - Weight increased [Unknown]
